FAERS Safety Report 8697138 (Version 2)
Quarter: 2012Q4

REPORT INFORMATION
  Report Type: 
  Country: GB (occurrence: GB)
  Receive Date: 20120801
  Receipt Date: 20120905
  Transmission Date: 20130627
  Serious: Yes (Other)
  Sender: FDA-Public Use
  Company Number: GB-B.I. PHARMACEUTICALS,INC./RIDGEFIELD-2012-UK-00977UK

PATIENT
  Sex: Female

DRUGS (1)
  1. ATROVENT INHALER CFC-FREE [Suspect]
     Route: 055

REACTIONS (2)
  - Choking [Unknown]
  - Product taste abnormal [Unknown]
